FAERS Safety Report 19708077 (Version 1)
Quarter: 2021Q3

REPORT INFORMATION
  Report Type: Spontaneous
  Country: JP (occurrence: JP)
  Receive Date: 20210816
  Receipt Date: 20210816
  Transmission Date: 20211014
  Serious: Yes (Other)
  Sender: FDA-Public Use
  Company Number: JP-ASTRAZENECA-2021A676304

PATIENT
  Age: 17 Year
  Sex: Female

DRUGS (1)
  1. BIPRESSO (QUETIAPINE FUMARATE) [Suspect]
     Active Substance: QUETIAPINE FUMARATE
     Indication: PRODUCT USED FOR UNKNOWN INDICATION
     Dosage: 450.0MG UNKNOWN
     Route: 048

REACTIONS (2)
  - Altered state of consciousness [Unknown]
  - Intentional overdose [Unknown]

NARRATIVE: CASE EVENT DATE: 20210803
